FAERS Safety Report 15345297 (Version 1)
Quarter: 2018Q3

REPORT INFORMATION
  Report Type: Spontaneous
  Country: CN (occurrence: CN)
  Receive Date: 20180903
  Receipt Date: 20180903
  Transmission Date: 20181010
  Serious: Yes (Other)
  Sender: FDA-Public Use
  Company Number: CN-PFIZER INC-2018348990

PATIENT
  Age: 63 Year
  Sex: Male
  Weight: 65 kg

DRUGS (12)
  1. VFEND [Suspect]
     Active Substance: VORICONAZOLE
     Indication: BRONCHOPULMONARY ASPERGILLOSIS
     Dosage: 200 MG, 2X/DAY
     Route: 041
     Dates: start: 20171229
  2. DOXOFYLLINE AND GLUCOSE [Concomitant]
     Indication: ASTHMA
     Dosage: 0.3 G, 2X/DAY
     Route: 042
     Dates: start: 20171229, end: 20180112
  3. POTASSIUM CHLORIDE. [Concomitant]
     Active Substance: POTASSIUM CHLORIDE
     Indication: BLOOD POTASSIUM
     Dosage: 10 ML, 1X/DAY
     Route: 041
     Dates: start: 20171229, end: 20180112
  4. COAPROVEL [Concomitant]
     Active Substance: HYDROCHLOROTHIAZIDE\IRBESARTAN
     Indication: HYPERTENSION
     Dosage: 1 DF, 1X/DAY
     Route: 048
     Dates: start: 20171225, end: 20180112
  5. SAI LE MEI LE [Concomitant]
     Indication: SPUTUM ABNORMAL
     Dosage: 30 MG, 2X/DAY
     Route: 042
     Dates: start: 20171226, end: 20180112
  6. LANSOPRAZOLE. [Interacting]
     Active Substance: LANSOPRAZOLE
     Indication: ABDOMINAL DISCOMFORT
     Dosage: 30 MG, 1X/DAY
     Route: 041
     Dates: start: 20171229, end: 20180108
  7. PULMICORT RESPULES [Concomitant]
     Active Substance: BUDESONIDE
     Indication: CHRONIC OBSTRUCTIVE PULMONARY DISEASE
     Dosage: 1 MG, 3X/DAY
     Dates: start: 20171225, end: 20180108
  8. VITAMIN B6 [Concomitant]
     Active Substance: PYRIDOXINE HYDROCHLORIDE
     Indication: VITAMIN SUPPLEMENTATION
     Dosage: 0.2 G, 1X/DAY
     Route: 041
     Dates: start: 20171229, end: 20180112
  9. IPRATROPIUM BROMIDE. [Concomitant]
     Active Substance: IPRATROPIUM BROMIDE
     Indication: CHRONIC OBSTRUCTIVE PULMONARY DISEASE
     Dosage: 500 UG, 3X/DAY
     Dates: start: 20171225, end: 20180108
  10. PREDNISONE ACETATE [Concomitant]
     Active Substance: PREDNISONE ACETATE
     Indication: INFECTION
     Dosage: 5 MG, 2X/DAY
     Route: 048
     Dates: start: 20171229, end: 20180112
  11. BIAPENEM [Concomitant]
     Active Substance: BIAPENEM
     Indication: BACTERIAL INFECTION
     Dosage: 0.6 G, 2X/DAY
     Route: 042
     Dates: start: 20171229, end: 20180104
  12. BRICANYL [Concomitant]
     Active Substance: TERBUTALINE SULFATE
     Indication: CHRONIC OBSTRUCTIVE PULMONARY DISEASE
     Dosage: 5 MG, 3X/DAY
     Dates: start: 20171225, end: 20180108

REACTIONS (2)
  - Drug interaction [Unknown]
  - Hepatic function abnormal [Unknown]

NARRATIVE: CASE EVENT DATE: 20180106
